FAERS Safety Report 9605145 (Version 1)
Quarter: 2013Q4

REPORT INFORMATION
  Report Type: Spontaneous
  Country: US (occurrence: US)
  Receive Date: 20131008
  Receipt Date: 20131008
  Transmission Date: 20140711
  Serious: Yes (Other)
  Sender: FDA-Public Use
  Company Number: US-BAXTER-2013BAX038583

PATIENT
  Age: 18 Year
  Sex: Female

DRUGS (3)
  1. GAMMAGARD LIQUID [Suspect]
     Indication: TRANSPLANT REJECTION
     Dosage: 2 G/KG
     Route: 042
  2. METHYLPREDNISOLONE [Suspect]
     Indication: TRANSPLANT REJECTION
     Dosage: BID X 6 DOSES
     Route: 065
  3. BORTEZOMIB [Suspect]
     Indication: TRANSPLANT REJECTION
     Route: 042

REACTIONS (6)
  - Herpangina [Recovered/Resolved]
  - Cytomegalovirus infection [Recovered/Resolved]
  - Leukopenia [Recovered/Resolved]
  - Atypical mycobacterial infection [Recovered/Resolved]
  - Mouth ulceration [Recovered/Resolved]
  - Vaginal ulceration [Recovered/Resolved]
